FAERS Safety Report 24810802 (Version 2)
Quarter: 2025Q2

REPORT INFORMATION
  Report Type: Report from Study
  Country: US (occurrence: US)
  Receive Date: 20250106
  Receipt Date: 20250408
  Transmission Date: 20250716
  Serious: No
  Sender: TG THERAPEUTICS
  Company Number: US-TG THERAPEUTICS INC.-TGT004406

PATIENT

DRUGS (1)
  1. UBLITUXIMAB [Suspect]
     Active Substance: UBLITUXIMAB
     Indication: Multiple sclerosis
     Route: 042
     Dates: start: 20241223, end: 20241223

REACTIONS (6)
  - Infusion related reaction [Unknown]
  - Oropharyngeal pain [Unknown]
  - Cough [Unknown]
  - Productive cough [Unknown]
  - Pulmonary pain [Unknown]
  - Chest pain [Unknown]

NARRATIVE: CASE EVENT DATE: 20241201
